FAERS Safety Report 5627498-5 (Version None)
Quarter: 2008Q1

REPORT INFORMATION
  Report Type: 
  Country: None (occurrence: None)
  Receive Date: 20080215
  Receipt Date: 20071030
  Transmission Date: 20080703
  Serious: No
  Sender: FDA-Public Use
  Company Number: A0690548A

PATIENT
  Age: 74 Year
  Sex: Female

DRUGS (4)
  1. COREG CR [Suspect]
     Indication: PAIN
     Dosage: 10MG PER DAY
     Route: 048
     Dates: start: 20070914
  2. LIPITOR [Concomitant]
  3. PAXIL [Concomitant]
  4. RODEX [Concomitant]

REACTIONS (3)
  - HYPOAESTHESIA [None]
  - PAIN [None]
  - PARAESTHESIA [None]
